FAERS Safety Report 12738060 (Version 1)
Quarter: 2016Q3

REPORT INFORMATION
  Report Type: Report from Study
  Country: KR (occurrence: KR)
  Receive Date: 20160913
  Receipt Date: 20160913
  Transmission Date: 20161109
  Serious: Yes (Hospitalization)
  Sender: FDA-Public Use
  Company Number: KR-BAYER-2016-171973

PATIENT
  Age: 45 Year
  Sex: Female

DRUGS (7)
  1. LOPERAMIDE [Concomitant]
     Active Substance: LOPERAMIDE
     Dosage: DAILY DOSE 6 MG
     Route: 048
     Dates: start: 20160725
  2. STIVARGA [Suspect]
     Active Substance: REGORAFENIB
     Indication: COLORECTAL CANCER
     Dosage: DAILY DOSE 120 MG
     Route: 048
     Dates: start: 20160725, end: 20160730
  3. NAPROXEN. [Concomitant]
     Active Substance: NAPROXEN
     Dosage: DAILY DOSE 1000 MG
     Route: 048
     Dates: start: 20160730, end: 20160802
  4. STIVARGA [Suspect]
     Active Substance: REGORAFENIB
     Indication: COLORECTAL CANCER
     Dosage: UNK
     Dates: start: 20160803
  5. CEFTRIAXONE. [Concomitant]
     Active Substance: CEFTRIAXONE
     Dosage: DAILY DOSE 2 G
     Route: 042
     Dates: start: 20160727
  6. STIVARGA [Suspect]
     Active Substance: REGORAFENIB
     Indication: COLORECTAL CANCER
     Dosage: DAILY DOSE 160 MG
     Route: 048
     Dates: start: 20160712, end: 20160724
  7. PROPACETAMOL [Concomitant]
     Active Substance: PROPACETAMOL
     Dosage: DAILY DOSE 1000 MG
     Route: 042
     Dates: start: 20160727

REACTIONS (1)
  - Febrile neutropenia [Recovered/Resolved]

NARRATIVE: CASE EVENT DATE: 20160724
